FAERS Safety Report 10631116 (Version 1)
Quarter: 2014Q4

REPORT INFORMATION
  Report Type: Spontaneous
  Country: US (occurrence: US)
  Receive Date: 20141205
  Receipt Date: 20141205
  Transmission Date: 20150529
  Serious: No
  Sender: FDA-Public Use
  Company Number: US-BRISTOL-MYERS SQUIBB COMPANY-20732541

PATIENT
  Age: 66 Year
  Sex: Female
  Weight: 90.7 kg

DRUGS (4)
  1. METFORMIN HCL TABS [Suspect]
     Active Substance: METFORMIN HYDROCHLORIDE
     Indication: TYPE 2 DIABETES MELLITUS
     Dosage: 500MG QID
     Dates: start: 201302
  2. ATENOLOL. [Suspect]
     Active Substance: ATENOLOL
     Indication: BLOOD PRESSURE
  3. VICTOZA [Suspect]
     Active Substance: LIRAGLUTIDE
     Indication: TYPE 2 DIABETES MELLITUS
  4. GLYBURIDE. [Suspect]
     Active Substance: GLYBURIDE

REACTIONS (3)
  - Urticaria [Unknown]
  - Diarrhoea [Recovered/Resolved]
  - Blood glucose decreased [Unknown]
